FAERS Safety Report 6313587-9 (Version None)
Quarter: 2009Q3

REPORT INFORMATION
  Report Type: 
  Country: None (occurrence: None)
  Receive Date: 20090818
  Receipt Date: 20090806
  Transmission Date: 20100115
  Serious: Yes (Hospitalization)
  Sender: FDA-Public Use
  Company Number: GB-ROCHE-650151

PATIENT
  Age: 7 Year
  Sex: Female

DRUGS (5)
  1. MYCOPHENOLATE MOFETIL [Suspect]
     Indication: EVANS SYNDROME
     Route: 065
  2. CYCLOSPORINE [Suspect]
     Indication: EVANS SYNDROME
     Route: 065
  3. IMMUNE GLOBULIN INTRAVENOUS (HUMAN) [Suspect]
     Indication: EVANS SYNDROME
     Route: 042
  4. PREDNISOLONE [Suspect]
     Indication: EVANS SYNDROME
     Route: 065
  5. RITUXIMAB [Concomitant]
     Indication: EVANS SYNDROME
     Route: 042

REACTIONS (8)
  - COUGH [None]
  - DECREASED APPETITE [None]
  - DILATATION VENTRICULAR [None]
  - LUNG DISORDER [None]
  - OXYGEN SATURATION DECREASED [None]
  - PULMONARY HYPERTENSION [None]
  - RESPIRATORY DISORDER [None]
  - TRICUSPID VALVE INCOMPETENCE [None]
